FAERS Safety Report 25127439 (Version 1)
Quarter: 2025Q1

REPORT INFORMATION
  Report Type: Report from Study
  Country: US (occurrence: US)
  Receive Date: 20250327
  Receipt Date: 20250327
  Transmission Date: 20250409
  Serious: Yes (Hospitalization)
  Sender: JOHNSON AND JOHNSON
  Company Number: US-JNJFOC-20250255380

PATIENT
  Sex: Male

DRUGS (2)
  1. DARZALEX FASPRO [Suspect]
     Active Substance: DARATUMUMAB\HYALURONIDASE-FIHJ
     Indication: Product used for unknown indication
     Dates: start: 20250211
  2. DARZALEX FASPRO [Suspect]
     Active Substance: DARATUMUMAB\HYALURONIDASE-FIHJ
     Dates: start: 20250218

REACTIONS (4)
  - Heart rate increased [Not Recovered/Not Resolved]
  - Blood pressure decreased [Not Recovered/Not Resolved]
  - Oxygen saturation decreased [Not Recovered/Not Resolved]
  - Pyrexia [Not Recovered/Not Resolved]
